FAERS Safety Report 7401245-9 (Version None)
Quarter: 2011Q2

REPORT INFORMATION
  Report Type: 
  Country: None (occurrence: None)
  Receive Date: 20110407
  Receipt Date: 20110328
  Transmission Date: 20111010
  Serious: Yes (Death, Other)
  Sender: FDA-Public Use
  Company Number: CA-ELI_LILLY_AND_COMPANY-CA201104000456

PATIENT

DRUGS (10)
  1. PEMETREXED [Suspect]
     Indication: NON-SMALL CELL LUNG CANCER STAGE IIIA
     Dosage: 300 MG/M2, DAYS 1 AND 22
     Route: 042
  2. CISPLATIN [Concomitant]
     Dosage: 20 MG/M2, DAYS 1-5 AND DAYS 22-26 (DOSE LEVEL 4)
     Route: 042
  3. VITAMIN B-12 [Concomitant]
     Dosage: 1 MG, EVERY 9 WEEKS
     Route: 030
  4. PEMETREXED [Suspect]
     Dosage: 500 MG/M2, DAYS 1 AND 22
     Route: 042
  5. CISPLATIN [Concomitant]
     Indication: NON-SMALL CELL LUNG CANCER STAGE IIIA
     Dosage: 25 MG/M2, ON DAYS 1-3 AND 22-24 (DOSE LEVELS 1-3)
     Route: 042
  6. PEMETREXED [Suspect]
     Dosage: 500 MG/M2, DAY 1 EVERY 3 WEEKS
     Route: 042
  7. FOLIC ACID [Concomitant]
     Dosage: 0.4 MG, QD
     Route: 048
  8. CISPLATIN [Concomitant]
     Dosage: 75 MG/M2, ON DAY 1 EVERY 3 WEEKS
     Route: 042
  9. PEMETREXED [Suspect]
     Dosage: 400 MG/M2, DAYS 1 AND 22
     Route: 042
  10. DEXAMETHASONE [Concomitant]
     Indication: RASH
     Dosage: 4 MG, EVERY 12 HOURS FOR SIX DOSES
     Route: 048

REACTIONS (5)
  - WEIGHT DECREASED [None]
  - MYELOID LEUKAEMIA [None]
  - ODYNOPHAGIA [None]
  - OESOPHAGITIS [None]
  - MYELODYSPLASTIC SYNDROME [None]
